FAERS Safety Report 8141362-1 (Version None)
Quarter: 2012Q1

REPORT INFORMATION
  Report Type: 
  Country: None (occurrence: None)
  Receive Date: 20120216
  Receipt Date: 20120206
  Transmission Date: 20120608
  Serious: Yes (Hospitalization, Other)
  Sender: FDA-Public Use
  Company Number: PHHY2012AU000686

PATIENT
  Sex: Female

DRUGS (1)
  1. TEGRETOL [Suspect]
     Indication: EPILEPSY
     Dosage: 200 MG, TID
     Dates: start: 19690101

REACTIONS (7)
  - VITAMIN D DEFICIENCY [None]
  - MATERNAL EXPOSURE DURING PREGNANCY [None]
  - CONTUSION [None]
  - CALCIUM DEFICIENCY [None]
  - ERYTHEMA [None]
  - IDIOPATHIC THROMBOCYTOPENIC PURPURA [None]
  - GRAND MAL CONVULSION [None]
